FAERS Safety Report 19506394 (Version 1)
Quarter: 2021Q3

REPORT INFORMATION
  Report Type: Spontaneous
  Country: US (occurrence: US)
  Receive Date: 20210708
  Receipt Date: 20210708
  Transmission Date: 20211014
  Serious: Yes (Hospitalization)
  Sender: FDA-Public Use
  Company Number: None

PATIENT
  Age: 67 Year
  Sex: Male

DRUGS (1)
  1. PACERONE [Suspect]
     Active Substance: AMIODARONE HYDROCHLORIDE
     Dates: start: 20170503

REACTIONS (10)
  - Drug hypersensitivity [None]
  - Neuropathy peripheral [None]
  - Asthenia [None]
  - Cough [None]
  - Upper airway obstruction [None]
  - Hypersensitivity [None]
  - Ageusia [None]
  - Acute respiratory distress syndrome [None]
  - Illness [None]
  - Myopathy [None]

NARRATIVE: CASE EVENT DATE: 20170506
